FAERS Safety Report 19523487 (Version 4)
Quarter: 2021Q4

REPORT INFORMATION
  Report Type: Report from Study
  Country: US (occurrence: US)
  Receive Date: 20210712
  Receipt Date: 20211008
  Transmission Date: 20220304
  Serious: No
  Sender: FDA-Public Use
  Company Number: NVSC2021US150735

PATIENT
  Sex: Male

DRUGS (2)
  1. PROMACTA [Suspect]
     Active Substance: ELTROMBOPAG OLAMINE
     Indication: Product used for unknown indication
     Dosage: UNKNOWN
     Route: 048
  2. PROMACTA [Suspect]
     Active Substance: ELTROMBOPAG OLAMINE
     Route: 048

REACTIONS (14)
  - Osteoarthritis [Unknown]
  - Arthralgia [Unknown]
  - Bone pain [Unknown]
  - Myalgia [Unknown]
  - Influenza [Unknown]
  - COVID-19 [Unknown]
  - Nausea [Unknown]
  - Vomiting [Unknown]
  - Diarrhoea [Unknown]
  - Asthenia [Unknown]
  - Platelet count decreased [Unknown]
  - Product availability issue [Unknown]
  - Platelet count decreased [Unknown]
  - Platelet count increased [Unknown]
